FAERS Safety Report 6115482-7 (Version None)
Quarter: 2009Q1

REPORT INFORMATION
  Report Type: 
  Country: None (occurrence: None)
  Receive Date: 20090313
  Receipt Date: 20090305
  Transmission Date: 20090719
  Serious: Yes (Life-Threatening)
  Sender: FDA-Public Use
  Company Number: JP-ABBOTT-09P-087-0558741-00

PATIENT
  Sex: Male

DRUGS (6)
  1. LEUPLIN SR FOR INJECTION 11.25 MG [Suspect]
     Indication: PROSTATE CANCER
     Route: 058
     Dates: start: 20081114
  2. BASEN [Concomitant]
     Indication: DIABETES MELLITUS
     Route: 048
     Dates: start: 19950928
  3. BAYLOTENSIN [Concomitant]
     Indication: HYPERTENSION
     Route: 048
     Dates: start: 19950928
  4. ACECOL [Concomitant]
     Indication: HYPERTENSION
     Route: 048
     Dates: start: 19950928
  5. AVISHOT [Concomitant]
     Indication: BENIGN PROSTATIC HYPERPLASIA
     Route: 048
     Dates: start: 20050325
  6. CASODEX [Concomitant]
     Indication: PROSTATE CANCER
     Route: 048
     Dates: start: 20081107

REACTIONS (1)
  - ANAPHYLACTIC REACTION [None]
